FAERS Safety Report 25611966 (Version 1)
Quarter: 2025Q3

REPORT INFORMATION
  Report Type: Spontaneous
  Country: EU (occurrence: EU)
  Receive Date: 20250728
  Receipt Date: 20250728
  Transmission Date: 20251020
  Serious: Yes (Hospitalization, Other)
  Sender: AUROBINDO
  Company Number: EU-ANGELINI PHARMA PORTUGAL-2025-038379

PATIENT
  Age: 73 Year
  Sex: Male

DRUGS (4)
  1. PREDNISOLONE [Suspect]
     Active Substance: PREDNISOLONE
     Indication: Pericardial effusion
     Dosage: 40 MILLIGRAM, ONCE A DAY (40 MG/DAY)
     Route: 065
  2. PREDNISOLONE [Suspect]
     Active Substance: PREDNISOLONE
     Indication: Product use in unapproved indication
  3. COLCHICINE [Concomitant]
     Active Substance: COLCHICINE
     Indication: Pericardial effusion
     Route: 065
  4. ASPIRIN [Concomitant]
     Active Substance: ASPIRIN
     Indication: Pericardial effusion
     Route: 065

REACTIONS (3)
  - Rebound effect [Recovered/Resolved]
  - Pericardial effusion [Recovered/Resolved]
  - Off label use [Unknown]
